FAERS Safety Report 5530894-8 (Version None)
Quarter: 2007Q4

REPORT INFORMATION
  Report Type: 
  Country: None (occurrence: None)
  Receive Date: 20071130
  Receipt Date: 20071127
  Transmission Date: 20080405
  Serious: Yes (Other)
  Sender: FDA-Public Use
  Company Number: US-ASTRAZENECA-2007UW27166

PATIENT
  Age: 72 Year
  Sex: Female
  Weight: 71.7 kg

DRUGS (6)
  1. CRESTOR [Suspect]
     Indication: BLOOD CHOLESTEROL INCREASED
     Route: 048
     Dates: start: 20030101
  2. THYROID TAB [Concomitant]
  3. ASPIRIN [Concomitant]
  4. VITAMIN E [Concomitant]
  5. MIOCARDIS [Concomitant]
  6. FOSAMAX [Concomitant]

REACTIONS (1)
  - HEPATIC CIRRHOSIS [None]
